FAERS Safety Report 11640268 (Version 1)
Quarter: 2015Q4

REPORT INFORMATION
  Report Type: Spontaneous
  Country: US (occurrence: None)
  Receive Date: 20151016
  Receipt Date: 20151016
  Transmission Date: 20160304
  Serious: Yes (Life-Threatening)
  Sender: FDA-Public Use
  Company Number: None

PATIENT
  Age: 58 Year
  Sex: Male
  Weight: 78.2 kg

DRUGS (1)
  1. CETUXIMAB [Suspect]
     Active Substance: CETUXIMAB
     Indication: HEAD AND NECK CANCER STAGE IV
     Route: 042
     Dates: start: 20150826, end: 20150826

REACTIONS (5)
  - Nausea [None]
  - Sedation [None]
  - Vomiting [None]
  - Confusional state [None]
  - Angina pectoris [None]

NARRATIVE: CASE EVENT DATE: 20150826
